FAERS Safety Report 9301786 (Version 1)
Quarter: 2013Q2

REPORT INFORMATION
  Report Type: Spontaneous
  Country: US (occurrence: US)
  Receive Date: 20130521
  Receipt Date: 20130521
  Transmission Date: 20140414
  Serious: No
  Sender: FDA-Public Use
  Company Number: US-TEVA-338079USA

PATIENT
  Age: 55 Year
  Sex: Female
  Weight: 52.66 kg

DRUGS (9)
  1. FENTORA [Suspect]
     Route: 002
  2. MORPHINE SULFATE [Concomitant]
     Indication: PAIN
  3. METOPROLOL [Concomitant]
     Indication: CARDIAC DISORDER
     Route: 048
  4. NIFEDIPINE [Concomitant]
     Indication: CARDIAC DISORDER
  5. ROSUVASTATIN [Concomitant]
     Indication: CARDIAC DISORDER
  6. UBIDECARENONE [Concomitant]
     Indication: CARDIAC DISORDER
     Dosage: 200 MILLIGRAM DAILY;
  7. PROMETHAZINE [Concomitant]
  8. ONDANSETRON [Concomitant]
  9. MONTELUKAST [Concomitant]
     Dosage: 10 MILLIGRAM DAILY;

REACTIONS (8)
  - Product solubility abnormal [Unknown]
  - Product taste abnormal [Unknown]
  - Muscle spasms [Not Recovered/Not Resolved]
  - Off label use [Unknown]
  - Weight decreased [Recovered/Resolved]
  - Nausea [Not Recovered/Not Resolved]
  - Influenza like illness [Not Recovered/Not Resolved]
  - Diarrhoea [Not Recovered/Not Resolved]
